FAERS Safety Report 5274976-7 (Version None)
Quarter: 2007Q1

REPORT INFORMATION
  Report Type: 
  Country: None (occurrence: None)
  Receive Date: 20061207
  Receipt Date: 20040504
  Transmission Date: 20070707
  Serious: Yes (Hospitalization)
  Sender: FDA-Public Use
  Company Number: 2004UW09208

PATIENT
  Age: 73 Year
  Sex: Female

DRUGS (5)
  1. TOPROL-XL [Suspect]
     Indication: ATRIAL FIBRILLATION
     Dosage: 25 MG QD PO
     Route: 048
  2. TOPROL-XL [Suspect]
     Indication: ATRIAL FIBRILLATION
     Dosage: 50 MG QD PO
     Route: 048
  3. TOPROL-XL [Suspect]
     Indication: ATRIAL FIBRILLATION
     Dosage: 100 MG QD PO
     Route: 048
  4. COUMADIN [Concomitant]
  5. TRICOR [Concomitant]

REACTIONS (2)
  - MEMORY IMPAIRMENT [None]
  - PALPITATIONS [None]
